FAERS Safety Report 9126604 (Version 1)
Quarter: 2013Q1

REPORT INFORMATION
  Report Type: Report from Study
  Country: DE (occurrence: DE)
  Receive Date: 20130117
  Receipt Date: 20130117
  Transmission Date: 20140127
  Serious: Yes (Hospitalization, Other)
  Sender: FDA-Public Use
  Company Number: DE-PFIZER INC-2013013680

PATIENT
  Age: 70 Year
  Sex: Male
  Weight: 99.1 kg

DRUGS (4)
  1. IRINOTECAN HCL [Suspect]
     Indication: COLON CANCER
     Dosage: 420 MG, DAY 1
     Route: 042
     Dates: start: 20111209
  2. CAPECITABINE [Suspect]
     Indication: COLON CANCER
     Dosage: 3500 MG, DAY 1-14, FOLLOWED BY 1 WEEK PAUSE, PER 3-WEEK CYCLE
     Route: 048
     Dates: start: 20110511
  3. CAPECITABINE [Suspect]
     Dosage: 5375 MG, CYCLIC
     Route: 048
  4. BEVACIZUMAB [Suspect]
     Indication: COLON CANCER
     Dosage: 60 MIN, ON DAY 1 PER 3-WEEK CYCLE
     Route: 042
     Dates: start: 20110511

REACTIONS (4)
  - Respiratory failure [Recovered/Resolved]
  - Dyspnoea [Recovered/Resolved]
  - Neutropenia [Not Recovered/Not Resolved]
  - Urinary tract disorder [Recovered/Resolved with Sequelae]
